FAERS Safety Report 9098443 (Version 3)
Quarter: 2013Q2

REPORT INFORMATION
  Report Type: Report from Study
  Country: DE (occurrence: DE)
  Receive Date: 20130213
  Receipt Date: 20130425
  Transmission Date: 20140414
  Serious: Yes (Hospitalization)
  Sender: FDA-Public Use
  Company Number: PHHO2013DE002382

PATIENT
  Age: 64 Year
  Sex: Female
  Weight: 54 kg

DRUGS (6)
  1. EVEROLIMUS [Suspect]
     Indication: BREAST CANCER METASTATIC
     Dosage: 10 MG, UNK
     Route: 048
     Dates: start: 20120827, end: 20130131
  2. EXEMESTANE [Suspect]
     Indication: BREAST CANCER METASTATIC
     Dosage: 25 MG, UNK
     Dates: start: 20120827
  3. BELOC ZOK [Concomitant]
     Indication: HYPERTENSION
     Dosage: 95 MG, QD
  4. RAMIPRIL [Concomitant]
     Indication: HYPERTENSION
     Dosage: 5/25 QD
     Route: 048
  5. RAMIPRIL BETA [Concomitant]
     Indication: HYPERTENSION
     Dosage: 2.5 MG, QD
  6. ZOMETA [Concomitant]
     Indication: METASTASES TO BONE
     Dosage: UNK
     Dates: start: 20101215

REACTIONS (1)
  - General physical health deterioration [Recovered/Resolved]
